FAERS Safety Report 10329857 (Version 1)
Quarter: 2014Q3

REPORT INFORMATION
  Report Type: Spontaneous
  Country: FR (occurrence: None)
  Receive Date: 20140717
  Receipt Date: 20140717
  Transmission Date: 20150326
  Serious: Yes (Hospitalization)
  Sender: FDA-Public Use
  Company Number: AUR-APL-2014-07401

PATIENT
  Age: 67 Year
  Sex: Female

DRUGS (6)
  1. HAVLANE (LOPRAZOLAM MESILATE) [Concomitant]
  2. BENSERAZIDE HYDROCHLORIDE\LEVODOPA [Suspect]
     Active Substance: BENSERAZIDE HYDROCHLORIDE\LEVODOPA
     Indication: PRODUCT USED FOR UNKNOWN INDICATION
     Dosage: 3 DF
     Route: 048
     Dates: start: 20140510, end: 20140514
  3. RISPERDAL [Concomitant]
     Active Substance: RISPERIDONE
  4. SERESTA (OXAZEPAM) [Concomitant]
     Active Substance: OXAZEPAM
  5. CITALOPRAM [Suspect]
     Active Substance: CITALOPRAM HYDROBROMIDE
     Indication: PRODUCT USED FOR UNKNOWN INDICATION
     Route: 048
     Dates: start: 20140510, end: 20140513
  6. LEVOTHYROXINE (LEVOTHYROXINE SODIUM) [Concomitant]

REACTIONS (2)
  - Serotonin syndrome [None]
  - Erythema [None]

NARRATIVE: CASE EVENT DATE: 20140513
